FAERS Safety Report 7364197-6 (Version None)
Quarter: 2011Q1

REPORT INFORMATION
  Report Type: 
  Country: None (occurrence: None)
  Receive Date: 20110321
  Receipt Date: 20110316
  Transmission Date: 20110831
  Serious: Yes (Other)
  Sender: FDA-Public Use
  Company Number: US-AMGEN-USASP2011014782

PATIENT
  Sex: Male

DRUGS (3)
  1. CORTICOSTEROIDS [Concomitant]
     Dosage: UNK
     Dates: start: 20101020
  2. NPLATE [Suspect]
     Indication: IDIOPATHIC THROMBOCYTOPENIC PURPURA
     Dates: start: 20101210
  3. IMMUNOGLOBULINS [Concomitant]

REACTIONS (1)
  - LYMPHADENOPATHY [None]
